FAERS Safety Report 20113000 (Version 1)
Quarter: 2021Q4

REPORT INFORMATION
  Report Type: Spontaneous
  Country: US (occurrence: None)
  Receive Date: 20211124
  Receipt Date: 20211124
  Transmission Date: 20220304
  Serious: Yes (Hospitalization)
  Sender: FDA-Public Use
  Company Number: None

PATIENT
  Age: 63 Year
  Sex: Male
  Weight: 79.4 kg

DRUGS (2)
  1. ATOVAQUONE [Suspect]
     Active Substance: ATOVAQUONE
     Dosage: FREQUENCY : DAILY;?
     Route: 048
     Dates: start: 20210929, end: 20211029
  2. ATOVAQUONE [Concomitant]
     Active Substance: ATOVAQUONE
     Dates: start: 20210929, end: 20211029

REACTIONS (9)
  - Stevens-Johnson syndrome [None]
  - Toxic epidermal necrolysis [None]
  - Mucosal inflammation [None]
  - Oropharyngeal pain [None]
  - Oral pain [None]
  - Mouth ulceration [None]
  - Nasal mucosal erosion [None]
  - Graft versus host disease [None]
  - Herpes virus infection [None]

NARRATIVE: CASE EVENT DATE: 20211027
